FAERS Safety Report 4629215-4 (Version None)
Quarter: 2005Q2

REPORT INFORMATION
  Report Type: 
  Country: None (occurrence: None)
  Receive Date: 20050404
  Receipt Date: 20050404
  Transmission Date: 20051028
  Serious: Yes (Hospitalization)
  Sender: FDA-Public Use
  Company Number: None

PATIENT
  Age: 63 Year
  Sex: Male

DRUGS (5)
  1. AMIODARONE 200MG (EON LABS) [Suspect]
     Indication: ATRIAL FLUTTER
     Dosage: TAKE 12 DAILY (PO)
     Route: 048
     Dates: start: 20050215, end: 20050304
  2. FLUOXETINE [Concomitant]
  3. LEVOXYL [Concomitant]
  4. DIGOXIN [Concomitant]
  5. WARFARIN [Concomitant]

REACTIONS (4)
  - ATRIAL FIBRILLATION [None]
  - NAUSEA [None]
  - PHARMACEUTICAL PRODUCT COMPLAINT [None]
  - TREMOR [None]
